FAERS Safety Report 6375610-5 (Version None)
Quarter: 2009Q3

REPORT INFORMATION
  Report Type: 
  Country: None (occurrence: None)
  Receive Date: 20090921
  Receipt Date: 20090916
  Transmission Date: 20100115
  Serious: Yes (Hospitalization)
  Sender: FDA-Public Use
  Company Number: SPV1-2009-01840

PATIENT
  Age: 71 Year
  Sex: Female

DRUGS (1)
  1. FOSRENOL [Suspect]
     Indication: HYPERPHOSPHATAEMIA
     Dosage: 1000 MG,ORAL; 2000 MG
     Route: 048

REACTIONS (3)
  - ASTHENIA [None]
  - BLOOD POTASSIUM INCREASED [None]
  - DIARRHOEA [None]
